FAERS Safety Report 16730428 (Version 1)
Quarter: 2019Q4

REPORT INFORMATION
  Report Type: Spontaneous
  Country: US (occurrence: US)
  Receive Date: 20190821
  Receipt Date: 20190821
  Transmission Date: 20200122
  Serious: Yes (Other)
  Sender: FDA-Public Use
  Company Number: None

PATIENT
  Age: 80 Year
  Sex: Female

DRUGS (1)
  1. LOSARTAN. [Suspect]
     Active Substance: LOSARTAN
     Indication: HYPERTENSION
     Dates: start: 20190807, end: 20190816

REACTIONS (3)
  - Blood pressure inadequately controlled [None]
  - Hypertension [None]
  - Product substitution issue [None]

NARRATIVE: CASE EVENT DATE: 20190807
